FAERS Safety Report 16427808 (Version 1)
Quarter: 2019Q2

REPORT INFORMATION
  Report Type: Report from Study
  Country: US (occurrence: US)
  Receive Date: 20190613
  Receipt Date: 20190613
  Transmission Date: 20190711
  Serious: Yes (Congenital Anomaly, Other)
  Sender: FDA-Public Use
  Company Number: US-VIIV HEALTHCARE LIMITED-US2019GSK104597

PATIENT

DRUGS (1)
  1. DOLUTEGRAVIR [Suspect]
     Active Substance: DOLUTEGRAVIR
     Indication: ANTIRETROVIRAL THERAPY
     Dosage: UNK
     Route: 064

REACTIONS (4)
  - Lissencephaly [Unknown]
  - Cerebral ventricle dilatation [Unknown]
  - Foetal exposure during pregnancy [Unknown]
  - Congenital central nervous system anomaly [Unknown]
